FAERS Safety Report 24639963 (Version 2)
Quarter: 2024Q4

REPORT INFORMATION
  Report Type: Spontaneous
  Country: CN (occurrence: CN)
  Receive Date: 20241120
  Receipt Date: 20241126
  Transmission Date: 20250114
  Serious: Yes (Hospitalization)
  Sender: NOVO NORDISK
  Company Number: CN-NOVOPROD-1317307

PATIENT
  Age: 35 Year
  Sex: Male
  Weight: 80 kg

DRUGS (5)
  1. NOVOLIN R [Suspect]
     Active Substance: INSULIN HUMAN
     Indication: Type 1 diabetes mellitus
     Dosage: 28-30 UNITS IN THE MORNING AND EVENING
     Dates: start: 200608, end: 2007
  2. ENTRESTO [Concomitant]
     Active Substance: SACUBITRIL\VALSARTAN
     Dosage: ONE TABLET EACH TIME BID
  3. NORVASC [Concomitant]
     Active Substance: AMLODIPINE BESYLATE
     Dosage: ONE TABLET IN THE MORNING AND EVENING
  4. KERENDIA [Concomitant]
     Active Substance: FINERENONE
     Dosage: TWO TABLETS EVERY MORNING
  5. THIOCTIC ACID [Concomitant]
     Active Substance: THIOCTIC ACID
     Dosage: TWO CAPSULES EACH TIME TID

REACTIONS (1)
  - Diabetic ketoacidosis [Recovered/Resolved]

NARRATIVE: CASE EVENT DATE: 20070101
